FAERS Safety Report 9356920 (Version 1)
Quarter: 2013Q2

REPORT INFORMATION
  Report Type: Spontaneous
  Country: NL (occurrence: NL)
  Receive Date: 20130620
  Receipt Date: 20130620
  Transmission Date: 20140414
  Serious: Yes (Other)
  Sender: FDA-Public Use
  Company Number: NL-ROCHE-1191206

PATIENT
  Sex: Female

DRUGS (2)
  1. ZELBORAF [Suspect]
     Indication: PRODUCT USED FOR UNKNOWN INDICATION
     Route: 048
     Dates: start: 20130115
  2. ZELBORAF [Suspect]
     Dosage: DOSE REDUCED
     Route: 048

REACTIONS (9)
  - Melanocytic naevus [Not Recovered/Not Resolved]
  - Dry skin [Unknown]
  - Hyperaesthesia [Unknown]
  - Feeling hot [Unknown]
  - Diarrhoea [Recovered/Resolved]
  - Rash [Recovering/Resolving]
  - Alopecia [Unknown]
  - Arthralgia [Unknown]
  - Hyperaesthesia [Unknown]
